FAERS Safety Report 19501033 (Version 1)
Quarter: 2021Q3

REPORT INFORMATION
  Report Type: Spontaneous
  Country: US (occurrence: US)
  Receive Date: 20210706
  Receipt Date: 20210706
  Transmission Date: 20211014
  Serious: No
  Sender: FDA-Public Use
  Company Number: None

PATIENT
  Age: 50 Year
  Sex: Female
  Weight: 99 kg

DRUGS (2)
  1. LEVOXYL [Concomitant]
     Active Substance: LEVOTHYROXINE SODIUM
  2. ESTRING [Suspect]
     Active Substance: ESTRADIOL
     Indication: HORMONE REPLACEMENT THERAPY
     Dosage: ?          QUANTITY:1 RING;OTHER FREQUENCY:3 MONTHS;?
     Route: 067
     Dates: start: 20201106, end: 20210610

REACTIONS (2)
  - Breast cancer [None]
  - Dose calculation error [None]

NARRATIVE: CASE EVENT DATE: 20210420
